FAERS Safety Report 16728485 (Version 5)
Quarter: 2022Q2

REPORT INFORMATION
  Report Type: Report from Study
  Country: US (occurrence: None)
  Receive Date: 20190822
  Receipt Date: 20220609
  Transmission Date: 20220721
  Serious: Yes (Hospitalization)
  Sender: FDA-Public Use
  Company Number: US-ROCHE-2376381

PATIENT
  Age: 59 Year
  Sex: Female
  Weight: 92.5 kg

DRUGS (2)
  1. ATEZOLIZUMAB [Suspect]
     Active Substance: ATEZOLIZUMAB
     Indication: Triple negative breast cancer
     Dosage: DATE OF LAST DOSE OF ATEZOLIZUMAB PRIOR TO ONSET OF DEHYDRATION, PULMONARY EMBOLUS AND GASTROENTERIT
     Route: 041
     Dates: start: 20190521
  2. CARBOPLATIN [Suspect]
     Active Substance: CARBOPLATIN
     Indication: Triple negative breast cancer
     Dosage: DOSE: 5 AUC?DATE OF LAST DOSE OF CARBOPLATIN PRIOR TO ONSET OF DEHYDRATION, PULMONARY EMBOLUS AND GA
     Route: 042
     Dates: start: 20190521

REACTIONS (7)
  - Gastroenteritis [Unknown]
  - Pneumonia [Recovered/Resolved]
  - Pulmonary embolism [Unknown]
  - Malaise [Unknown]
  - Pneumonia [Recovered/Resolved]
  - Gastroenteritis [Recovered/Resolved]
  - Dehydration [Recovered/Resolved]

NARRATIVE: CASE EVENT DATE: 20190801
